FAERS Safety Report 7001297-4 (Version None)
Quarter: 2010Q3

REPORT INFORMATION
  Report Type: 
  Country: None (occurrence: None)
  Receive Date: 20100920
  Receipt Date: 20100614
  Transmission Date: 20110219
  Serious: No
  Sender: FDA-Public Use
  Company Number: US-ASTRAZENECA-2010SE27983

PATIENT
  Sex: Male

DRUGS (1)
  1. SEROQUEL XR [Suspect]
     Route: 048

REACTIONS (5)
  - DRUG DEPENDENCE [None]
  - DRUG DOSE OMISSION [None]
  - INFLUENZA [None]
  - WEIGHT DECREASED [None]
  - WEIGHT INCREASED [None]
